FAERS Safety Report 20826227 (Version 1)
Quarter: 2022Q2

REPORT INFORMATION
  Report Type: Spontaneous
  Country: HR (occurrence: HR)
  Receive Date: 20220513
  Receipt Date: 20220513
  Transmission Date: 20220721
  Serious: Yes (Hospitalization, Other)
  Sender: FDA-Public Use
  Company Number: HR-009507513-2205HRV002429

PATIENT
  Age: 68 Year
  Sex: Female

DRUGS (2)
  1. KEYTRUDA [Suspect]
     Active Substance: PEMBROLIZUMAB
     Dosage: UNK
     Dates: start: 20211125, end: 20220217
  2. KEYTRUDA [Suspect]
     Active Substance: PEMBROLIZUMAB
     Dosage: 200 MILLIGRAM (IV)
     Route: 042
     Dates: start: 20220328

REACTIONS (14)
  - Acute kidney injury [Unknown]
  - Chronic kidney disease [Unknown]
  - Atrial fibrillation [Unknown]
  - Mitral valve incompetence [Unknown]
  - Tricuspid valve incompetence [Unknown]
  - Degenerative mitral valve disease [Unknown]
  - Degenerative aortic valve disease [Unknown]
  - Cardiomyopathy [Unknown]
  - Left ventricular dysfunction [Unknown]
  - Urinary tract infection [Unknown]
  - Gastroenteritis [Unknown]
  - Pulmonary arterial pressure increased [Unknown]
  - Spinal disorder [Unknown]
  - Product use issue [Unknown]

NARRATIVE: CASE EVENT DATE: 20220112
